FAERS Safety Report 25209043 (Version 1)
Quarter: 2025Q2

REPORT INFORMATION
  Report Type: Spontaneous
  Country: US (occurrence: None)
  Receive Date: 20250417
  Receipt Date: 20250417
  Transmission Date: 20250717
  Serious: Yes (Life-Threatening, Disabling)
  Sender: FDA-CTU
  Company Number: None

PATIENT
  Age: 27 Year
  Sex: Male
  Weight: 108 kg

DRUGS (7)
  1. ATOMOXETINE [Suspect]
     Active Substance: ATOMOXETINE
  2. BUPROPION [Suspect]
     Active Substance: BUPROPION
  3. INVEGA [Concomitant]
     Active Substance: PALIPERIDONE
  4. INVEGA SUSTENNA [Concomitant]
     Active Substance: PALIPERIDONE PALMITATE
  5. AMANTADINE [Concomitant]
     Active Substance: AMANTADINE
  6. TEA [Concomitant]
     Active Substance: TEA LEAF
  7. OMEGA 3 [Concomitant]
     Active Substance: CAPSAICIN

REACTIONS (3)
  - Product formulation issue [None]
  - Poor quality sleep [None]
  - Loss of personal independence in daily activities [None]

NARRATIVE: CASE EVENT DATE: 20250411
